FAERS Safety Report 13791710 (Version 1)
Quarter: 2017Q3

REPORT INFORMATION
  Report Type: Report from Study
  Country: None (occurrence: IT)
  Receive Date: 20170725
  Receipt Date: 20170725
  Transmission Date: 20171127
  Serious: Yes (Death, Hospitalization)
  Sender: FDA-Public Use
  Company Number: IT-ABBVIE-17P-083-2046896-00

PATIENT
  Age: 76 Year
  Sex: Female
  Weight: 52 kg

DRUGS (1)
  1. DUODOPA [Suspect]
     Active Substance: CARBIDOPA\LEVODOPA
     Indication: PARKINSON^S DISEASE
     Dosage: MD 9+3??CR 4,5??ED 0
     Route: 050
     Dates: start: 20081127

REACTIONS (2)
  - General physical health deterioration [Fatal]
  - Femur fracture [Fatal]

NARRATIVE: CASE EVENT DATE: 201706
